FAERS Safety Report 10420098 (Version 2)
Quarter: 2014Q3

REPORT INFORMATION
  Report Type: Report from Study
  Country: GB (occurrence: GB)
  Receive Date: 20140829
  Receipt Date: 20140829
  Transmission Date: 20150326
  Serious: Yes (Death, Hospitalization)
  Sender: FDA-Public Use
  Company Number: GB-BRISTOL-MYERS SQUIBB COMPANY-21291430

PATIENT
  Age: 57 Year
  Sex: Female
  Weight: 64.2 kg

DRUGS (4)
  1. NIVOLUMAB [Suspect]
     Active Substance: NIVOLUMAB
     Indication: BREAST CANCER
     Dosage: 1 MG/KG, THE SECOND AND LAST DOSE OF STUDY THERAPY WAS ADMINISTERED ON 17-JUL-2014.
     Route: 042
     Dates: start: 20140626
  2. TEMAZEPAM. [Concomitant]
     Active Substance: TEMAZEPAM
     Indication: INSOMNIA
  3. IPILIMUMAB [Suspect]
     Active Substance: IPILIMUMAB
     Indication: BREAST CANCER
     Dosage: 3 MG/KG, THE SECOND AND LAST DOSE OF STUDY THERAPY WAS ADMINISTERED ON 17-JUL-2014.
     Route: 042
     Dates: start: 20140626
  4. BECLOMETHASONE [Concomitant]
     Active Substance: BECLOMETHASONE
     Dates: start: 201406

REACTIONS (3)
  - Myasthenic syndrome [Not Recovered/Not Resolved]
  - Hypopituitarism [Unknown]
  - Malignant neoplasm progression [Fatal]

NARRATIVE: CASE EVENT DATE: 20140730
